FAERS Safety Report 5698365-6 (Version None)
Quarter: 2008Q2

REPORT INFORMATION
  Report Type: 
  Country: None (occurrence: None)
  Receive Date: 20080403
  Receipt Date: 20080320
  Transmission Date: 20081010
  Serious: Yes (Congenital Anomaly)
  Sender: FDA-Public Use
  Company Number: TNZFR200800056

PATIENT
  Sex: Male

DRUGS (1)
  1. INNOHEP [Suspect]
     Dosage: DAILY
     Dates: start: 20070412, end: 20070422

REACTIONS (2)
  - CONGENITAL RENAL DISORDER [None]
  - DRUG EXPOSURE DURING PREGNANCY [None]
